FAERS Safety Report 7678578-4 (Version None)
Quarter: 2011Q3

REPORT INFORMATION
  Report Type: 
  Country: None (occurrence: None)
  Receive Date: 20110811
  Receipt Date: 20110728
  Transmission Date: 20111222
  Serious: Yes (Hospitalization)
  Sender: FDA-Public Use
  Company Number: PHHY2011FR69587

PATIENT
  Sex: Female

DRUGS (2)
  1. TOFRANIL [Suspect]
     Indication: DEPRESSION
     Dosage: 1 DF, QD
     Route: 048
  2. CITALOPRAM HYDROBROMIDE [Suspect]
     Indication: DEPRESSION
     Dosage: 1 DF/DAILY
     Route: 048
     Dates: end: 20070929

REACTIONS (5)
  - MALAISE [None]
  - VERTIGO [None]
  - LOSS OF CONSCIOUSNESS [None]
  - HYPOTENSION [None]
  - VISION BLURRED [None]
